FAERS Safety Report 14536264 (Version 2)
Quarter: 2018Q1

REPORT INFORMATION
  Report Type: Report from Study
  Country: US (occurrence: US)
  Receive Date: 20180215
  Receipt Date: 20180307
  Transmission Date: 20180509
  Serious: Yes (Hospitalization)
  Sender: FDA-Public Use
  Company Number: US-BAYER-2018-010946

PATIENT
  Age: 75 Year
  Sex: Female

DRUGS (2)
  1. STIVARGA [Suspect]
     Active Substance: REGORAFENIB
     Indication: HEPATIC CANCER
     Dosage: 160 MG, QD
     Route: 048
     Dates: start: 20180104, end: 20180108
  2. STIVARGA [Suspect]
     Active Substance: REGORAFENIB
     Indication: HEPATIC CANCER
     Dosage: 80 MG, DAILY
     Route: 048
     Dates: start: 20180201, end: 20180223

REACTIONS (7)
  - Loss of consciousness [Recovered/Resolved]
  - Mobility decreased [None]
  - Blood potassium decreased [Recovered/Resolved]
  - Nasal congestion [Not Recovered/Not Resolved]
  - Neuromyopathy [Recovered/Resolved]
  - Asthenia [Recovered/Resolved]
  - General physical health deterioration [None]

NARRATIVE: CASE EVENT DATE: 20180107
